FAERS Safety Report 10248978 (Version 2)
Quarter: 2015Q4

REPORT INFORMATION
  Report Type: Report from Study
  Country: US (occurrence: US)
  Receive Date: 20140620
  Receipt Date: 20151103
  Transmission Date: 20160304
  Serious: Yes (Other)
  Sender: FDA-Public Use
  Company Number: US-ROCHE-1419631

PATIENT
  Sex: Female

DRUGS (6)
  1. NAPROXEN. [Concomitant]
     Active Substance: NAPROXEN
     Indication: PAIN
     Route: 065
  2. AVASTIN [Suspect]
     Active Substance: BEVACIZUMAB
     Indication: NEOVASCULAR AGE-RELATED MACULAR DEGENERATION
     Route: 065
     Dates: end: 201307
  3. VALIUM [Concomitant]
     Active Substance: DIAZEPAM
     Route: 065
  4. LUCENTIS [Suspect]
     Active Substance: RANIBIZUMAB
     Indication: HISTOPLASMOSIS
     Dosage: RIGHT EYE
     Route: 050
     Dates: start: 20140613
  5. LUCENTIS [Suspect]
     Active Substance: RANIBIZUMAB
     Indication: NEOVASCULAR AGE-RELATED MACULAR DEGENERATION
  6. AVASTIN [Suspect]
     Active Substance: BEVACIZUMAB
     Indication: HISTOPLASMOSIS

REACTIONS (5)
  - Retinal operation [Unknown]
  - Presumed ocular histoplasmosis syndrome [Unknown]
  - Retinal detachment [Unknown]
  - Lacrimation increased [Unknown]
  - Eye irritation [Unknown]
